FAERS Safety Report 23268659 (Version 1)
Quarter: 2023Q4

REPORT INFORMATION
  Report Type: Spontaneous
  Country: US (occurrence: US)
  Receive Date: 20231206
  Receipt Date: 20231206
  Transmission Date: 20240110
  Serious: No
  Sender: FDA-Public Use
  Company Number: US-002147023-NVSC2023US253985

PATIENT
  Sex: Female

DRUGS (1)
  1. PIQRAY [Suspect]
     Active Substance: ALPELISIB
     Indication: Breast cancer
     Dosage: 200 MG, QD (REDUCED TO CURRENT LOWEST DOSE)
     Route: 048

REACTIONS (6)
  - Oral pain [Not Recovered/Not Resolved]
  - Tenderness [Unknown]
  - Oral mucosal erythema [Unknown]
  - Scar [Unknown]
  - Oral hyperaesthesia [Unknown]
  - Arthropod sting [Unknown]
